FAERS Safety Report 7789669-1 (Version None)
Quarter: 2011Q3

REPORT INFORMATION
  Report Type: 
  Country: None (occurrence: None)
  Receive Date: 20110930
  Receipt Date: 20110928
  Transmission Date: 20111222
  Serious: Yes (Hospitalization)
  Sender: FDA-Public Use
  Company Number: JP-EISAI INC-E2090-01750-CLI-JP

PATIENT
  Sex: Female

DRUGS (15)
  1. ZONISAMIDE [Suspect]
     Indication: PARKINSON'S DISEASE
     Route: 048
     Dates: start: 20100630, end: 20100823
  2. YODEL-S [Concomitant]
     Route: 048
     Dates: end: 20100802
  3. COMTAN [Concomitant]
     Route: 048
  4. CARBIDOPA AND LEVODOPA [Concomitant]
     Route: 048
     Dates: end: 20100802
  5. CARBIDOPA AND LEVODOPA [Concomitant]
     Route: 048
     Dates: start: 20100803
  6. KENEI G [Concomitant]
     Route: 054
  7. DOPS [Concomitant]
     Route: 048
  8. MAGNESIUM SULFATE [Concomitant]
     Route: 048
  9. LAXOBERON [Concomitant]
     Route: 048
  10. AMOBAN [Concomitant]
     Route: 048
  11. LEPRINTON [Concomitant]
     Route: 048
     Dates: end: 20100802
  12. SEROQUEL [Concomitant]
     Route: 048
     Dates: end: 20100802
  13. NITRAZEPAM [Concomitant]
     Route: 048
     Dates: end: 20100802
  14. COREMINAL [Concomitant]
     Route: 048
     Dates: end: 20100802
  15. PURSENNID [Concomitant]
     Route: 048

REACTIONS (1)
  - NEUROLEPTIC MALIGNANT SYNDROME [None]
